FAERS Safety Report 16880807 (Version 1)
Quarter: 2019Q4

REPORT INFORMATION
  Report Type: Spontaneous
  Country: US (occurrence: US)
  Receive Date: 20191003
  Receipt Date: 20191003
  Transmission Date: 20200122
  Serious: Yes (Other)
  Sender: FDA-Public Use
  Company Number: US-HIKMA PHARMACEUTICALS USA INC.-US-H14001-19-05120

PATIENT
  Sex: Female

DRUGS (2)
  1. PREDNISONE. [Suspect]
     Active Substance: PREDNISONE
     Indication: ACUTE DISSEMINATED ENCEPHALOMYELITIS
     Dosage: TAPERING
     Route: 048
  2. PREDNISONE. [Suspect]
     Active Substance: PREDNISONE
     Dosage: TAPERED DOWN TO 5 MG EVERY OTHER DAY
     Route: 048

REACTIONS (2)
  - Ataxia [Recovering/Resolving]
  - Facial paralysis [Recovering/Resolving]
